FAERS Safety Report 8276586-6 (Version None)
Quarter: 2012Q2

REPORT INFORMATION
  Report Type: 
  Country: None (occurrence: None)
  Receive Date: 20120412
  Receipt Date: 20120403
  Transmission Date: 20120825
  Serious: Yes (Hospitalization, Other)
  Sender: FDA-Public Use
  Company Number: US-BAYER-200939482NA

PATIENT
  Age: 25 Year
  Sex: Female
  Weight: 68.027 kg

DRUGS (11)
  1. LEXAPRO [Concomitant]
     Indication: MAJOR DEPRESSION
  2. YASMIN [Suspect]
     Indication: PRODUCT USED FOR UNKNOWN INDICATION
     Dosage: UNK
     Dates: start: 20040309, end: 20061015
  3. LEXAPRO [Concomitant]
     Indication: ANXIETY
     Dosage: 10 MG (DAILY DOSE), ,
     Dates: start: 20080528, end: 20080906
  4. LO/OVRAL [Concomitant]
  5. WARFARIN SODIUM [Concomitant]
     Dates: end: 20070215
  6. OGESTREL 0.5/50-21 [Concomitant]
     Indication: CONTRACEPTION
     Dates: start: 20060304
  7. PREDNISONE TAB [Concomitant]
     Indication: ASTHMA
  8. PROTONIX [Concomitant]
     Indication: EROSIVE OESOPHAGITIS
     Dosage: 40 MG DAILY
  9. COLAZAL [Concomitant]
     Indication: INFLAMMATORY BOWEL DISEASE
     Dosage: 750 MG (DAILY DOSE), ,
     Dates: start: 20080610, end: 20100825
  10. PREDNISONE TAB [Concomitant]
     Indication: COLITIS ULCERATIVE
     Dosage: 20 MG, QD
     Dates: start: 19980101, end: 20060615
  11. AZASAN [Concomitant]
     Dates: start: 20080528, end: 20090604

REACTIONS (6)
  - DEEP VEIN THROMBOSIS [None]
  - PAIN IN EXTREMITY [None]
  - DYSPNOEA [None]
  - PYREXIA [None]
  - PLEURITIC PAIN [None]
  - PULMONARY EMBOLISM [None]
